FAERS Safety Report 9229038 (Version 2)
Quarter: 2013Q2

REPORT INFORMATION
  Report Type: Spontaneous
  Country: US (occurrence: US)
  Receive Date: 20130412
  Receipt Date: 20130508
  Transmission Date: 20140414
  Serious: Yes (Disabling, Other)
  Sender: FDA-Public Use
  Company Number: CHPA2013US005992

PATIENT
  Age: 89 Year
  Sex: Male

DRUGS (1)
  1. MAALOX ANTACID/ANTIGAS MAX QDTABS LEMON [Suspect]
     Indication: ABDOMINAL DISCOMFORT
     Dosage: UNK, UNK
     Route: 048

REACTIONS (7)
  - Cerebrovascular accident [Recovered/Resolved with Sequelae]
  - Hemiparesis [Not Recovered/Not Resolved]
  - Memory impairment [Not Recovered/Not Resolved]
  - Hearing impaired [Not Recovered/Not Resolved]
  - Hernia obstructive [Recovered/Resolved]
  - Post procedural complication [Recovered/Resolved]
  - Visual impairment [Unknown]
